FAERS Safety Report 7365201-1 (Version None)
Quarter: 2011Q1

REPORT INFORMATION
  Report Type: 
  Country: None (occurrence: None)
  Receive Date: 20110321
  Receipt Date: 20110307
  Transmission Date: 20110831
  Serious: Yes (Hospitalization)
  Sender: FDA-Public Use
  Company Number: US-MYLANLABS-2011S1004741

PATIENT
  Age: 33 Year
  Sex: Male

DRUGS (4)
  1. DIAZEPAM [Suspect]
     Route: 065
  2. FLUOXETINE [Suspect]
     Indication: ADJUSTMENT DISORDER WITH DEPRESSED MOOD
     Dosage: INSTRUCTED TO INCREASE THE DOSAGE BY 20 MG/DAY EACH WEEK UNTIL A DOSAGE OF 80 MG/DAY WAS REACHED.
     Route: 048
  3. FLUOXETINE [Suspect]
     Dosage: INCREASED FROM 20 TO 80 MG/DAY 1 WEEK AFTER FIRST INITIATED.
     Route: 048
  4. SERTRALINE HYDROCHLORIDE [Suspect]
     Route: 065

REACTIONS (1)
  - SEROTONIN SYNDROME [None]
